FAERS Safety Report 16761722 (Version 1)
Quarter: 2019Q3

REPORT INFORMATION
  Report Type: Spontaneous
  Country: US (occurrence: US)
  Receive Date: 20190830
  Receipt Date: 20190830
  Transmission Date: 20191005
  Serious: No
  Sender: FDA-Public Use
  Company Number: US-SA-2019SA237896

PATIENT
  Age: 62 Year
  Sex: Female

DRUGS (10)
  1. VICODIN ES [Concomitant]
     Active Substance: ACETAMINOPHEN\HYDROCODONE BITARTRATE
  2. KEVZARA [Suspect]
     Active Substance: SARILUMAB
     Dosage: 200 MG, QOW
     Route: 058
     Dates: start: 2019
  3. CELEBREX [Concomitant]
     Active Substance: CELECOXIB
  4. COUMADIN [Concomitant]
     Active Substance: WARFARIN SODIUM
  5. DEPAKOTE [Concomitant]
     Active Substance: DIVALPROEX SODIUM
  6. FOLIC ACID. [Concomitant]
     Active Substance: FOLIC ACID
  7. INDERAL XL [Concomitant]
     Active Substance: PROPRANOLOL HYDROCHLORIDE
  8. ULTRAM [PARACETAMOL;TRAMADOL HYDROCHLORIDE] [Concomitant]
     Active Substance: ACETAMINOPHEN\TRAMADOL HYDROCHLORIDE
  9. KEVZARA [Suspect]
     Active Substance: SARILUMAB
     Dosage: 200 MG, QOW
     Route: 058
     Dates: start: 201901, end: 2019
  10. ZOLOFT [Concomitant]
     Active Substance: SERTRALINE HYDROCHLORIDE

REACTIONS (1)
  - Ill-defined disorder [Unknown]
